FAERS Safety Report 16228755 (Version 1)
Quarter: 2019Q2

REPORT INFORMATION
  Report Type: Spontaneous
  Country: US (occurrence: US)
  Receive Date: 20190422
  Receipt Date: 20190422
  Transmission Date: 20190711
  Serious: Yes (Hospitalization)
  Sender: FDA-Public Use
  Company Number: None

PATIENT
  Sex: Male

DRUGS (5)
  1. PROTONIX TAB 40MG [Concomitant]
  2. PREDNISONE TAB 10MG [Concomitant]
     Active Substance: PREDNISONE
  3. PULMOZYME [Suspect]
     Active Substance: DORNASE ALFA
     Indication: INFECTIVE PULMONARY EXACERBATION OF CYSTIC FIBROSIS
     Route: 055
     Dates: start: 20160108
  4. IPRATROPIUM-ALBUTEROL 0.5-3MG [Concomitant]
  5. AZITHROMYCIN 500MG TAB [Concomitant]

REACTIONS (1)
  - Lung infection [None]
